FAERS Safety Report 6180961-3 (Version None)
Quarter: 2009Q2

REPORT INFORMATION
  Report Type: 
  Country: None (occurrence: None)
  Receive Date: 20090506
  Receipt Date: 20090427
  Transmission Date: 20091009
  Serious: Yes (Death, Other)
  Sender: FDA-Public Use
  Company Number: NO-PFIZER INC-2009207148

PATIENT

DRUGS (2)
  1. PREDNISOLONE STEAGLATE AND PREDNISOLONE [Suspect]
     Indication: PEMPHIGOID
     Dosage: 60 MG, DAILY
  2. PREDNISOLONE AND PREDNISOLONE STEAGLATE [Suspect]
     Dosage: 30 MG, DAILY

REACTIONS (2)
  - AORTIC ANEURYSM RUPTURE [None]
  - GASTRIC ULCER HAEMORRHAGE [None]
